FAERS Safety Report 9058874 (Version 1)
Quarter: 2013Q1

REPORT INFORMATION
  Report Type: Spontaneous
  Country: US (occurrence: US)
  Receive Date: 20130211
  Receipt Date: 20130211
  Transmission Date: 20140127
  Serious: Yes (Death)
  Sender: FDA-Public Use
  Company Number: US-INCYTE CORPORATION-2012IN002642

PATIENT
  Age: 84 None
  Sex: Female

DRUGS (1)
  1. JAKAFI [Suspect]
     Dosage: 10 MG, BID
     Route: 048
     Dates: start: 20121214

REACTIONS (5)
  - Death [Fatal]
  - Abdominal distension [None]
  - Diarrhoea [Unknown]
  - Transfusion [Unknown]
  - Flatulence [Unknown]
